FAERS Safety Report 5122919-9 (Version None)
Quarter: 2006Q4

REPORT INFORMATION
  Report Type: 
  Country: None (occurrence: None)
  Receive Date: 20061009
  Receipt Date: 20060901
  Transmission Date: 20070319
  Serious: Yes (Disabling, Other)
  Sender: FDA-Public Use
  Company Number: 2006UW18700

PATIENT
  Age: 63 Year
  Sex: Male
  Weight: 97 kg

DRUGS (1)
  1. ZOLADEX [Suspect]
     Indication: PROSTATE CANCER
     Dosage: TOOK OVER TWO YEARS
     Route: 058

REACTIONS (6)
  - ANKLE FRACTURE [None]
  - BALANCE DISORDER [None]
  - BLOOD PRESSURE INCREASED [None]
  - GAIT DISTURBANCE [None]
  - PANIC DISORDER [None]
  - WEIGHT INCREASED [None]
